FAERS Safety Report 10066862 (Version 1)
Quarter: 2014Q2

REPORT INFORMATION
  Report Type: Report from Study
  Country: TW (occurrence: TW)
  Receive Date: 20140408
  Receipt Date: 20140408
  Transmission Date: 20141212
  Serious: No
  Sender: FDA-Public Use
  Company Number: PHHY2014TW042696

PATIENT
  Age: 58 Year
  Sex: Male

DRUGS (17)
  1. PASCA [Concomitant]
     Indication: TENDERNESS
  2. DESMOPRESSIN [Concomitant]
     Indication: NEOPLASM PROSTATE
     Dosage: UNK UKN, UNK
     Dates: start: 20130314
  3. BENZOYL PEROXIDE [Concomitant]
     Indication: FOLLICULITIS
     Dosage: UNK UKN, UNK
     Dates: start: 20120801
  4. GENTAMCIN [Concomitant]
     Indication: FOLLICULITIS
     Dosage: UNK UKN, UNK
     Dates: start: 20120328, end: 20120731
  5. POLYTAR LIQUID [Concomitant]
     Indication: FOLLICULITIS
     Dosage: UNK UKN, UNK
     Dates: start: 20120328, end: 20120731
  6. CLOBETASOL PROPIONATE [Concomitant]
     Indication: FOLLICULITIS
     Dosage: UNK UKN, UNK
     Dates: start: 20120801
  7. ASPIRIN [Concomitant]
     Indication: BASAL GANGLIA INFARCTION
     Dosage: UNK UKN, UNK
     Dates: start: 20130420
  8. ASPIRIN [Concomitant]
     Indication: INFARCTION
  9. AMN107 [Suspect]
     Dosage: 600 MG, UNK
     Dates: start: 20111126, end: 20130422
  10. AMN107 [Suspect]
     Dosage: 200 MG, UNK
     Dates: start: 20130422, end: 20130422
  11. AMN107 [Suspect]
     Dosage: 400 MG, UNK
     Dates: start: 20130425, end: 20130425
  12. AMN107 [Suspect]
     Dosage: 600 MG, UNK
     Dates: start: 20130426, end: 20131119
  13. BETAMETHASONE [Concomitant]
     Indication: FOLLICULITIS
     Dosage: UNK UKN, UNK
     Dates: start: 20120328, end: 20120731
  14. DOXYCYCLINE [Concomitant]
     Indication: RASH PUSTULAR
     Dosage: UNK UKN, UNK
     Dates: start: 20120801
  15. DOXYCYCLINE [Concomitant]
     Indication: TENDERNESS
  16. NITROGLYCERIN [Concomitant]
     Indication: CHEST PAIN
     Dosage: UNK UKN, UNK
     Dates: start: 20130920, end: 20130920
  17. PASCA [Concomitant]
     Indication: RASH PUSTULAR
     Dosage: UNK UKN, UNK
     Dates: start: 20120328, end: 20120731

REACTIONS (1)
  - Hypercholesterolaemia [Unknown]
